FAERS Safety Report 8927711 (Version 1)
Quarter: 2012Q4

REPORT INFORMATION
  Report Type: 
  Country: CA (occurrence: CA)
  Receive Date: 20121126
  Receipt Date: 20121126
  Transmission Date: 20130627
  Serious: Yes (Other)
  Sender: FDA-Public Use
  Company Number: CA-BAYER-2012-120674

PATIENT

DRUGS (1)
  1. GADOVIST [Suspect]
     Dosage: UNK
     Dates: start: 2012

REACTIONS (1)
  - Adverse event [None]
